FAERS Safety Report 4715454-0 (Version None)
Quarter: 2005Q3

REPORT INFORMATION
  Report Type: 
  Country: None (occurrence: None)
  Receive Date: 20050718
  Receipt Date: 20050613
  Transmission Date: 20060218
  Serious: Yes (Hospitalization)
  Sender: FDA-Public Use
  Company Number: 200515560GDDC

PATIENT
  Age: 64 Year
  Sex: Male
  Weight: 75 kg

DRUGS (10)
  1. RPR 109881A [Suspect]
     Indication: NON-SMALL CELL LUNG CANCER STAGE IV
     Route: 041
     Dates: start: 20050607, end: 20050607
  2. LASIX [Suspect]
     Indication: HYPERTENSION
     Route: 048
     Dates: start: 20030101, end: 20050612
  3. AMIODARONE HCL [Suspect]
     Indication: ARRHYTHMIA
     Route: 048
  4. I-SDN [Suspect]
     Indication: ANGINA PECTORIS
     Route: 048
     Dates: start: 20030101, end: 20050612
  5. TOPROL-XL [Suspect]
     Indication: HYPERTENSION
     Route: 048
     Dates: start: 20030101
  6. ZOCOR [Concomitant]
     Indication: HYPERLIPIDAEMIA
     Route: 048
     Dates: start: 20030101, end: 20050612
  7. LOPERAMIDE [Concomitant]
     Indication: DIARRHOEA
     Route: 048
     Dates: start: 20050609
  8. PHENERGAN [Concomitant]
     Indication: NAUSEA
     Route: 048
     Dates: start: 20050607
  9. ZOFRAN [Concomitant]
     Indication: NAUSEA
     Route: 048
     Dates: start: 20050607
  10. LORTAB [Concomitant]
     Indication: PAIN
     Route: 048
     Dates: start: 20050607

REACTIONS (11)
  - ALPHA HAEMOLYTIC STREPTOCOCCAL INFECTION [None]
  - ANOREXIA [None]
  - ATRIAL FIBRILLATION [None]
  - BACTERAEMIA [None]
  - BLOOD SODIUM DECREASED [None]
  - DIARRHOEA [None]
  - FEBRILE NEUTROPENIA [None]
  - HYPOTENSION [None]
  - PLATELET COUNT DECREASED [None]
  - STREPTOCOCCAL SEROLOGY POSITIVE [None]
  - WEIGHT DECREASED [None]
